FAERS Safety Report 7827304-4 (Version None)
Quarter: 2011Q4

REPORT INFORMATION
  Report Type: 
  Country: None (occurrence: None)
  Receive Date: 20111020
  Receipt Date: 20111019
  Transmission Date: 20120403
  Serious: Yes (Life-Threatening, Other)
  Sender: FDA-Public Use
  Company Number: AU-PFIZER INC-2011240585

PATIENT
  Age: 23 Year
  Sex: Female

DRUGS (4)
  1. VALETTE [Concomitant]
     Indication: CONTRACEPTION
     Dosage: ONCE A DAY
     Route: 048
  2. DIAZEPAM [Concomitant]
     Indication: ANXIETY
     Dosage: 5 MG, AS NEEDED
     Route: 048
  3. ZIPRASIDONE HYDROCHLORIDE [Suspect]
     Indication: ANXIETY DISORDER
     Dosage: 20 MG AT NIGHT
     Route: 048
     Dates: end: 20111006
  4. PRISTIQ [Concomitant]
     Indication: ANXIETY
     Dosage: 100 MG, 1X/DAY, IN THE MORNING
     Route: 048

REACTIONS (3)
  - ROAD TRAFFIC ACCIDENT [None]
  - DYSTONIA [None]
  - HYPERSENSITIVITY [None]
